FAERS Safety Report 9381993 (Version 1)
Quarter: 2013Q3

REPORT INFORMATION
  Report Type: Spontaneous
  Country: DE (occurrence: DE)
  Receive Date: 20130703
  Receipt Date: 20130703
  Transmission Date: 20140515
  Serious: Yes (Hospitalization, Other)
  Sender: FDA-Public Use
  Company Number: DE-TEVA-414956GER

PATIENT
  Age: 0 Year
  Sex: Female
  Weight: 2.7 kg

DRUGS (2)
  1. LAMOTRIGIN [Suspect]
     Route: 064
  2. THYRONAJOD [Concomitant]
     Route: 064

REACTIONS (3)
  - Apnoea neonatal [Recovered/Resolved]
  - Agitation [Recovered/Resolved]
  - Oxygen saturation decreased [Recovered/Resolved]
